FAERS Safety Report 25198453 (Version 1)
Quarter: 2025Q2

REPORT INFORMATION
  Report Type: Spontaneous
  Country: US (occurrence: US)
  Receive Date: 20250415
  Receipt Date: 20250415
  Transmission Date: 20250717
  Serious: No
  Sender: BRACCO
  Company Number: US-BRACCO-2025US01234

PATIENT

DRUGS (1)
  1. VUEWAY [Suspect]
     Active Substance: GADOPICLENOL
     Dates: start: 202502, end: 202502

REACTIONS (1)
  - Hot flush [Unknown]

NARRATIVE: CASE EVENT DATE: 20250201
